FAERS Safety Report 19614032 (Version 1)
Quarter: 2021Q3

REPORT INFORMATION
  Report Type: Spontaneous
  Country: US (occurrence: US)
  Receive Date: 20210727
  Receipt Date: 20210727
  Transmission Date: 20211014
  Serious: Yes (Death, Other)
  Sender: FDA-Public Use
  Company Number: US-HIKMA PHARMACEUTICALS USA INC.-US-H14001-21-03408

PATIENT
  Age: 57 Year
  Sex: Male

DRUGS (3)
  1. CYCLOSPORINE. [Suspect]
     Active Substance: CYCLOSPORINE
     Indication: THROMBOTIC THROMBOCYTOPENIC PURPURA
     Dosage: UNKNOWN
     Route: 065
  2. RITUXIMAB. [Suspect]
     Active Substance: RITUXIMAB
     Indication: THROMBOTIC THROMBOCYTOPENIC PURPURA
     Dosage: UNKNOWN
     Route: 065
  3. CYCLOPHOSPHAMIDE. [Suspect]
     Active Substance: CYCLOPHOSPHAMIDE
     Indication: THROMBOTIC THROMBOCYTOPENIC PURPURA
     Dosage: UNKNOWN
     Route: 065

REACTIONS (4)
  - Thrombotic thrombocytopenic purpura [Fatal]
  - Condition aggravated [Fatal]
  - Thrombocytopenia [Fatal]
  - Blood lactate dehydrogenase increased [Unknown]
